FAERS Safety Report 6369729-2 (Version None)
Quarter: 2009Q3

REPORT INFORMATION
  Report Type: 
  Country: None (occurrence: None)
  Receive Date: 20090923
  Receipt Date: 20090911
  Transmission Date: 20100115
  Serious: Yes (Other)
  Sender: FDA-Public Use
  Company Number: US-PFIZER INC-2009270512

PATIENT
  Sex: Female

DRUGS (7)
  1. PROVERA [Suspect]
     Indication: HORMONE REPLACEMENT THERAPY
     Route: 048
  2. PREMARIN [Suspect]
     Indication: HORMONE REPLACEMENT THERAPY
  3. PREMPRO [Suspect]
     Indication: HORMONE REPLACEMENT THERAPY
     Dosage: 0.625 MG, 2.5 MG
  4. COVERA-HS [Concomitant]
     Indication: HYPERTENSION
     Dosage: UNK
     Dates: start: 19850101, end: 20030101
  5. HYDROCHLOROTHIAZIDE [Concomitant]
     Indication: HYPERTENSION
     Dosage: UNK
     Dates: start: 19850101
  6. TENEX [Concomitant]
     Indication: HYPERTENSION
     Dosage: UNK
     Dates: start: 19850101
  7. SYNTHROID [Concomitant]
     Indication: THYROID DISORDER
     Dosage: UNK
     Dates: start: 19800101, end: 20030101

REACTIONS (1)
  - BREAST CANCER FEMALE [None]
